FAERS Safety Report 6121341-6 (Version None)
Quarter: 2009Q1

REPORT INFORMATION
  Report Type: 
  Country: None (occurrence: None)
  Receive Date: 20090313
  Receipt Date: 20090313
  Transmission Date: 20090719
  Serious: No
  Sender: FDA-Public Use
  Company Number: None

PATIENT
  Age: 24 Year
  Sex: Female
  Weight: 101.6057 kg

DRUGS (1)
  1. MIRENA [Suspect]
     Indication: CONTRACEPTION
     Dosage: 1 1 EVERY 5 YEARS INTRA-UTERI
     Route: 015
     Dates: start: 20080513, end: 20090312

REACTIONS (7)
  - BACK PAIN [None]
  - BREAST PAIN [None]
  - FATIGUE [None]
  - MENORRHAGIA [None]
  - MUSCLE SPASMS [None]
  - VAGINAL DISCHARGE [None]
  - VAGINAL ODOUR [None]
